FAERS Safety Report 15907769 (Version 16)
Quarter: 2021Q4

REPORT INFORMATION
  Report Type: Report from Study
  Country: DO (occurrence: DO)
  Receive Date: 20190204
  Receipt Date: 20211123
  Transmission Date: 20220303
  Serious: Yes (Hospitalization, Disabling, Other)
  Sender: FDA-Public Use
  Company Number: PHHY2017DO121586

PATIENT
  Age: 60 Year
  Sex: Female

DRUGS (4)
  1. GILENYA [Suspect]
     Active Substance: FINGOLIMOD HYDROCHLORIDE
     Indication: Relapsing-remitting multiple sclerosis
     Dosage: 0.5 MG, QD
     Route: 048
     Dates: start: 20170504
  2. GILENYA [Suspect]
     Active Substance: FINGOLIMOD HYDROCHLORIDE
     Dosage: 0.5 MG
     Route: 065
  3. GILENYA [Suspect]
     Active Substance: FINGOLIMOD HYDROCHLORIDE
     Dosage: 0.5 MG (EVERY 48 HOURS)
     Route: 048
     Dates: start: 20170504
  4. TEGRETOL [Suspect]
     Active Substance: CARBAMAZEPINE
     Indication: Trigeminal neuralgia
     Dosage: 200 MG
     Route: 065

REACTIONS (35)
  - Multiple sclerosis relapse [Recovering/Resolving]
  - Fatigue [Recovering/Resolving]
  - Mobility decreased [Recovering/Resolving]
  - Gait inability [Unknown]
  - Visual impairment [Recovering/Resolving]
  - Vision blurred [Recovering/Resolving]
  - Glaucoma [Unknown]
  - Urinary tract infection [Recovered/Resolved]
  - Pelvic organ injury [Unknown]
  - Toothache [Unknown]
  - Memory impairment [Unknown]
  - Feeling abnormal [Recovering/Resolving]
  - Fall [Recovering/Resolving]
  - Pyrexia [Unknown]
  - Eating disorder [Recovering/Resolving]
  - Pain [Recovering/Resolving]
  - Muscular weakness [Unknown]
  - Urinary incontinence [Unknown]
  - Vomiting [Unknown]
  - Vaginal infection [Recovering/Resolving]
  - Lymphopenia [Unknown]
  - Hypoacusis [Unknown]
  - Temperature intolerance [Unknown]
  - Malaise [Recovering/Resolving]
  - Tooth disorder [Unknown]
  - Eye pain [Recovering/Resolving]
  - Upper limb fracture [Unknown]
  - General physical health deterioration [Recovering/Resolving]
  - Trigeminal neuralgia [Unknown]
  - Depressed mood [Unknown]
  - Anxiety [Unknown]
  - Peroneal nerve palsy [Unknown]
  - Influenza [Unknown]
  - Off label use [Unknown]
  - Inappropriate schedule of product administration [Unknown]

NARRATIVE: CASE EVENT DATE: 20181201
